FAERS Safety Report 5404397-5 (Version None)
Quarter: 2007Q3

REPORT INFORMATION
  Report Type: 
  Country: None (occurrence: None)
  Receive Date: 20070802
  Receipt Date: 20070724
  Transmission Date: 20080115
  Serious: Yes (Disabling, Other)
  Sender: FDA-Public Use
  Company Number: JP-PFIZER INC-2007041797

PATIENT
  Sex: Male
  Weight: 61 kg

DRUGS (8)
  1. NORVASC [Suspect]
     Indication: HYPERTENSION
     Route: 048
  2. TICLOPIDINE HCL [Suspect]
     Indication: TRANSIENT ISCHAEMIC ATTACK
     Route: 048
  3. MUCOSTA [Suspect]
     Indication: GASTRITIS
     Route: 048
  4. ACECOL [Concomitant]
     Indication: HYPERTENSION
     Route: 048
  5. NITOROL [Concomitant]
     Route: 048
  6. VESICARE [Concomitant]
     Route: 048
  7. SERMION [Concomitant]
     Indication: TRANSIENT ISCHAEMIC ATTACK
     Route: 048
  8. ACTONEL [Concomitant]
     Route: 048

REACTIONS (2)
  - ANAEMIA [None]
  - WHITE BLOOD CELL COUNT DECREASED [None]
